FAERS Safety Report 21841486 (Version 3)
Quarter: 2023Q1

REPORT INFORMATION
  Report Type: Spontaneous
  Country: US (occurrence: US)
  Receive Date: 20230110
  Receipt Date: 20230210
  Transmission Date: 20230417
  Serious: No
  Sender: FDA-Public Use
  Company Number: US-PFIZER INC-PV202300002197

PATIENT
  Age: 12 Year
  Sex: Male
  Weight: 34.93 kg

DRUGS (1)
  1. GENOTROPIN [Suspect]
     Active Substance: SOMATROPIN
     Dosage: 12 MG

REACTIONS (3)
  - Device leakage [Unknown]
  - Device use issue [Unknown]
  - Poor quality device used [Unknown]
